FAERS Safety Report 9968780 (Version 1)
Quarter: 2014Q1

REPORT INFORMATION
  Report Type: Spontaneous
  Country: US (occurrence: US)
  Receive Date: 20140306
  Receipt Date: 20140306
  Transmission Date: 20141002
  Serious: No
  Sender: FDA-Public Use
  Company Number: US-ABBVIE-13P-163-1146024-00

PATIENT
  Age: 30 Year
  Sex: Male
  Weight: 76.73 kg

DRUGS (4)
  1. HUMIRA [Suspect]
     Indication: CROHN^S DISEASE
     Dates: start: 2010, end: 201112
  2. PENTASA [Concomitant]
     Indication: CROHN^S DISEASE
  3. PREDNISONE [Concomitant]
     Indication: CROHN^S DISEASE
  4. METHSCOPOLAMINE BROMIDE [Concomitant]
     Indication: ABDOMINAL DISCOMFORT

REACTIONS (1)
  - Crohn^s disease [Not Recovered/Not Resolved]
